FAERS Safety Report 5112718-6 (Version None)
Quarter: 2006Q3

REPORT INFORMATION
  Report Type: 
  Country: None (occurrence: None)
  Receive Date: 20060922
  Receipt Date: 20060911
  Transmission Date: 20061208
  Serious: Yes (Other)
  Sender: FDA-Public Use
  Company Number: NL-GLAXOSMITHKLINE-B0438433A

PATIENT
  Age: 49 Year
  Sex: Male

DRUGS (1)
  1. LITHIUM CARBONATE [Suspect]
     Route: 065

REACTIONS (3)
  - HYPOVOLAEMIA [None]
  - RENAL FUNCTION TEST ABNORMAL [None]
  - THERAPEUTIC AGENT TOXICITY [None]
